FAERS Safety Report 4469846-8 (Version None)
Quarter: 2004Q3

REPORT INFORMATION
  Report Type: 
  Country: None (occurrence: None)
  Receive Date: 20040917
  Receipt Date: 20040616
  Transmission Date: 20050211
  Serious: No
  Sender: FDA-Public Use
  Company Number: US-JNJFOC-20040604596

PATIENT
  Age: 25 Year
  Sex: Female
  Weight: 53.5244 kg

DRUGS (2)
  1. ORTHO EVRA [Suspect]
     Indication: CONTRACEPTION
     Dosage: 1 DOSE(S), 3 IN 4 WEEK,
     Dates: start: 20040301
  2. MOTRIN [Concomitant]

REACTIONS (5)
  - BREAST DISCHARGE [None]
  - BREAST MASS [None]
  - BREAST TENDERNESS [None]
  - HYPERTROPHY BREAST [None]
  - WEIGHT INCREASED [None]
